FAERS Safety Report 9411156 (Version 3)
Quarter: 2013Q4

REPORT INFORMATION
  Report Type: Spontaneous
  Country: GB (occurrence: GB)
  Receive Date: 20130721
  Receipt Date: 20131101
  Transmission Date: 20140711
  Serious: Yes (Hospitalization, Other)
  Sender: FDA-Public Use
  Company Number: PHFR2013GB004095

PATIENT
  Age: 26 Year
  Sex: Male

DRUGS (4)
  1. CLOZARIL [Suspect]
     Indication: SCHIZOPHRENIA
     Dosage: UNK
     Route: 048
     Dates: start: 20110222
  2. CLOZARIL [Suspect]
     Dosage: 50 MG, BID
     Route: 048
     Dates: start: 20110304, end: 20110309
  3. RISPERIDONE [Concomitant]
     Dosage: 4 MG, BID
     Route: 048
     Dates: end: 20110316
  4. FLUPENTIXOL [Concomitant]
     Dosage: UNK
     Dates: start: 20110316

REACTIONS (4)
  - Cardiac disorder [Recovered/Resolved]
  - Electrocardiogram T wave inversion [Recovered/Resolved]
  - Tachycardia [Recovered/Resolved]
  - Blood creatine phosphokinase increased [Recovered/Resolved]
